FAERS Safety Report 7779444-6 (Version None)
Quarter: 2011Q3

REPORT INFORMATION
  Report Type: 
  Country: None (occurrence: None)
  Receive Date: 20110927
  Receipt Date: 20110919
  Transmission Date: 20111222
  Serious: No
  Sender: FDA-Public Use
  Company Number: US-BIOGENIDEC-2011BI035975

PATIENT
  Sex: Male

DRUGS (2)
  1. ALKASELTZER [Concomitant]
  2. TYSABRI [Suspect]
     Indication: MULTIPLE SCLEROSIS
     Route: 042
     Dates: start: 20110606

REACTIONS (2)
  - NASOPHARYNGITIS [None]
  - ERECTILE DYSFUNCTION [None]
